FAERS Safety Report 6262691-2 (Version None)
Quarter: 2009Q3

REPORT INFORMATION
  Report Type: 
  Country: None (occurrence: None)
  Receive Date: 20090708
  Receipt Date: 20090629
  Transmission Date: 20100115
  Serious: Yes (Other)
  Sender: FDA-Public Use
  Company Number: 2008US001996

PATIENT
  Age: 18 Year
  Sex: Male
  Weight: 56.7 kg

DRUGS (4)
  1. PROTOPIC [Suspect]
     Indication: VITILIGO
     Dosage: UNK, UNK, TOPICAL
     Route: 061
     Dates: start: 20040620, end: 20040721
  2. ELIDEL [Suspect]
     Indication: ECZEMA
     Dosage: 1 %, UNK, TOPICAL
     Route: 061
     Dates: start: 20020101
  3. ZODERM [Concomitant]
  4. CORTICOSTEROIDS [Concomitant]

REACTIONS (4)
  - ACUTE PULMONARY HISTOPLASMOSIS [None]
  - HEADACHE [None]
  - MICROLITHIASIS [None]
  - TESTIS CANCER [None]
